FAERS Safety Report 8223885-X (Version None)
Quarter: 2012Q1

REPORT INFORMATION
  Report Type: 
  Country: None (occurrence: None)
  Receive Date: 20120321
  Receipt Date: 20120319
  Transmission Date: 20120608
  Serious: Yes (Hospitalization)
  Sender: FDA-Public Use
  Company Number: FR-PFIZER INC-2012070513

PATIENT
  Age: 73 Year
  Sex: Male

DRUGS (12)
  1. XANAX [Suspect]
     Dosage: UNK
     Route: 048
     Dates: start: 20110101, end: 20111023
  2. XANAX [Suspect]
     Dosage: UNK, DOSE DECREASED
     Route: 048
     Dates: start: 20111024
  3. TIAPRIDAL [Suspect]
     Dosage: UNK, DOSE INCREASED
     Route: 048
     Dates: start: 20110101
  4. DEPAKOTE [Suspect]
     Dosage: UNK
     Dates: start: 20110101, end: 20111024
  5. POLYETHYLENE GLYCOL [Concomitant]
     Dosage: 1 DF, PER DAY
  6. XANAX [Suspect]
     Dosage: UNK
     Route: 048
     Dates: end: 20110501
  7. TIAPRIDAL [Suspect]
     Dosage: UNK
     Route: 048
     Dates: end: 20110501
  8. DIGOXIN [Concomitant]
     Dosage: 1 DF, PER DAY
  9. TIAPRIDAL [Suspect]
     Dosage: UNK, DOSE REDUCED
     Route: 048
     Dates: start: 20110501, end: 20110101
  10. TRIMEPRAZINE TARTRATE [Suspect]
     Dosage: UNK
     Route: 048
     Dates: start: 20110101, end: 20111024
  11. EXELON [Suspect]
     Dosage: 9.5 MG/24H, PER DAY
     Route: 062
     Dates: end: 20111024
  12. EQUANIL [Suspect]
     Dosage: UNK
     Route: 048
     Dates: start: 20110101, end: 20111024

REACTIONS (2)
  - ABNORMAL BEHAVIOUR [None]
  - AGGRESSION [None]
